FAERS Safety Report 5450805-3 (Version None)
Quarter: 2007Q3

REPORT INFORMATION
  Report Type: 
  Country: None (occurrence: None)
  Receive Date: 20070803
  Receipt Date: 20070109
  Transmission Date: 20080115
  Serious: Yes (Hospitalization)
  Sender: FDA-Public Use
  Company Number: US-JNJFOC-20061202917

PATIENT
  Age: 16 Year
  Sex: Female

DRUGS (1)
  1. TYLENOL (CAPLET) [Suspect]
     Indication: DRUG USE FOR UNKNOWN INDICATION
     Dosage: ^60-100^

REACTIONS (1)
  - INTENTIONAL OVERDOSE [None]
